FAERS Safety Report 13505914 (Version 1)
Quarter: 2017Q2

REPORT INFORMATION
  Report Type: Spontaneous
  Country: US (occurrence: US)
  Receive Date: 20170502
  Receipt Date: 20170502
  Transmission Date: 20170830
  Serious: No
  Sender: FDA-Public Use
  Company Number: US-ROCHE-1412298

PATIENT
  Sex: Male

DRUGS (1)
  1. AVASTIN [Suspect]
     Active Substance: BEVACIZUMAB
     Indication: GLIOBLASTOMA
     Dosage: EVERY 2 TO 3 WEEKS
     Route: 065

REACTIONS (8)
  - Depressed mood [Unknown]
  - Paranasal sinus discomfort [Unknown]
  - Thrombosis [Unknown]
  - Parosmia [Unknown]
  - Decreased appetite [Unknown]
  - Discomfort [Unknown]
  - Upper respiratory tract congestion [Unknown]
  - Abdominal pain upper [Unknown]
